FAERS Safety Report 19738678 (Version 3)
Quarter: 2022Q4

REPORT INFORMATION
  Report Type: Report from Study
  Country: NL (occurrence: NL)
  Receive Date: 20210823
  Receipt Date: 20221114
  Transmission Date: 20230113
  Serious: Yes (Other)
  Sender: FDA-Public Use
  Company Number: NL-MYLANLABS-2021M1053572

PATIENT
  Sex: Female

DRUGS (1)
  1. GLATIRAMER ACETATE [Suspect]
     Active Substance: GLATIRAMER ACETATE
     Indication: Relapsing multiple sclerosis
     Dosage: UNK UNK, 3XW
     Route: 058

REACTIONS (13)
  - Renal failure [Unknown]
  - Nephrolithiasis [Recovering/Resolving]
  - Fear of injection [Not Recovered/Not Resolved]
  - Fatigue [Recovering/Resolving]
  - Injection site rash [Recovering/Resolving]
  - Injection site swelling [Recovering/Resolving]
  - Injection site pain [Not Recovered/Not Resolved]
  - Injection site reaction [Unknown]
  - Injection site bruising [Recovering/Resolving]
  - Back pain [Not Recovered/Not Resolved]
  - Injection site hypoaesthesia [Recovering/Resolving]
  - Injection site paraesthesia [Recovering/Resolving]
  - Influenza like illness [Recovering/Resolving]

NARRATIVE: CASE EVENT DATE: 20220601
